FAERS Safety Report 17749562 (Version 1)
Quarter: 2020Q2

REPORT INFORMATION
  Report Type: Other
  Country: CN (occurrence: CN)
  Receive Date: 20200506
  Receipt Date: 20200506
  Transmission Date: 20200714
  Serious: Yes (Other)
  Sender: FDA-Public Use
  Company Number: CN-HEALTHCARE PHARMACEUTICALS LTD.-2083531

PATIENT
  Age: 27 Year
  Sex: Female

DRUGS (4)
  1. NITRAMIDINE [Suspect]
     Active Substance: NITRAMIDINE
     Route: 065
     Dates: start: 20151221, end: 20151225
  2. VINCRISTINE [Suspect]
     Active Substance: VINCRISTINE
     Route: 065
  3. CYCLOPHOSPHAMIDE. [Suspect]
     Active Substance: CYCLOPHOSPHAMIDE
     Route: 065
     Dates: start: 20151221
  4. DOXORUBICIN HYDROCHLORIDE. [Suspect]
     Active Substance: DOXORUBICIN HYDROCHLORIDE
     Indication: ANGIOSARCOMA METASTATIC
     Route: 065
     Dates: start: 20151221

REACTIONS (1)
  - Gastrointestinal disorder [Unknown]
